FAERS Safety Report 15272065 (Version 2)
Quarter: 2018Q3

REPORT INFORMATION
  Report Type: Spontaneous
  Country: US (occurrence: US)
  Receive Date: 20180813
  Receipt Date: 20180906
  Transmission Date: 20181010
  Serious: Yes (Hospitalization)
  Sender: FDA-Public Use
  Company Number: US-TASMAN PHARMA, INC.-2018TSM00001

PATIENT
  Age: 36 Year
  Sex: Male
  Weight: 99.77 kg

DRUGS (6)
  1. THORAZINE [Concomitant]
     Active Substance: CHLORPROMAZINE
  2. COGENTIN [Concomitant]
     Active Substance: BENZTROPINE MESYLATE
  3. CLOZAPINE. [Suspect]
     Active Substance: CLOZAPINE
     Indication: SCHIZOAFFECTIVE DISORDER
     Dosage: 300 MG, 1X/DAY, AT BEDTIME
     Dates: start: 2017
  4. LACTULOSE. [Concomitant]
     Active Substance: LACTULOSE
  5. PREDNISONE. [Concomitant]
     Active Substance: PREDNISONE
  6. DEPAKOTE [Suspect]
     Active Substance: DIVALPROEX SODIUM
     Dosage: UNK
     Dates: end: 201808

REACTIONS (8)
  - Mental status changes [Recovering/Resolving]
  - Hallucination [Unknown]
  - Confusional state [Recovering/Resolving]
  - Grip strength decreased [Recovering/Resolving]
  - Tremor [Recovered/Resolved]
  - Gait disturbance [Recovering/Resolving]
  - Hypophagia [Recovering/Resolving]
  - Muscular weakness [Recovering/Resolving]

NARRATIVE: CASE EVENT DATE: 201808
